FAERS Safety Report 17674209 (Version 3)
Quarter: 2020Q2

REPORT INFORMATION
  Report Type: Spontaneous
  Country: US (occurrence: US)
  Receive Date: 20200416
  Receipt Date: 20200614
  Transmission Date: 20200714
  Serious: No
  Sender: FDA-Public Use
  Company Number: US-ASTRAZENECA-2020SE48524

PATIENT
  Age: 26077 Day
  Sex: Female
  Weight: 52.2 kg

DRUGS (1)
  1. SYMBICORT [Suspect]
     Active Substance: BUDESONIDE\FORMOTEROL FUMARATE DIHYDRATE
     Indication: CHRONIC OBSTRUCTIVE PULMONARY DISEASE
     Dosage: 160MCG/4.5MCG,2 PUFFS TWO TIMES A DAY
     Route: 055

REACTIONS (6)
  - Intentional device misuse [Unknown]
  - Wrong technique in device usage process [Unknown]
  - Device delivery system issue [Unknown]
  - Bone density decreased [Unknown]
  - Drug dose omission by device [Unknown]
  - Visual impairment [Unknown]

NARRATIVE: CASE EVENT DATE: 20200405
